FAERS Safety Report 6475921-9 (Version None)
Quarter: 2009Q4

REPORT INFORMATION
  Report Type: 
  Country: None (occurrence: None)
  Receive Date: 20091204
  Receipt Date: 20091130
  Transmission Date: 20100525
  Serious: Yes (Death, Life-Threatening, Disabling, Other)
  Sender: FDA-Public Use
  Company Number: PHHY2009JP49043

PATIENT
  Sex: Male

DRUGS (29)
  1. SIMULECT [Suspect]
     Indication: RENAL TRANSPLANT
     Dosage: 20 MG, ONCE/SINGLE
     Route: 042
     Dates: start: 20091013, end: 20091013
  2. SIMULECT [Suspect]
     Dosage: 20 MG, ONCE/SINGLE
     Route: 042
     Dates: start: 20091017, end: 20091017
  3. SANDIMMUNE [Suspect]
     Indication: RENAL TRANSPLANT
     Dosage: 58 MG/DAY
     Route: 042
     Dates: start: 20091013, end: 20091102
  4. PANALDINE [Suspect]
     Indication: PROPHYLAXIS
     Dosage: 200 MG/DAY
     Route: 048
     Dates: start: 20091017, end: 20091020
  5. PLETAL [Suspect]
     Indication: PROPHYLAXIS
     Dosage: 50 MG/DAY
     Route: 048
     Dates: start: 20091021, end: 20091021
  6. PREDONINE [Suspect]
     Indication: RENAL TRANSPLANT
     Dosage: 50 MG/DAY
     Route: 048
     Dates: start: 20091016, end: 20091022
  7. NEORAL [Concomitant]
     Indication: RENAL TRANSPLANT
     Dosage: 280 MG/DAY
     Route: 048
     Dates: start: 20091006, end: 20091012
  8. PREDONINE [Concomitant]
     Dosage: 20 MG, UNK
     Route: 042
     Dates: start: 20091023, end: 20091101
  9. CELLCEPT [Concomitant]
     Indication: RENAL TRANSPLANT
     Dosage: 1500 MG, UNK
     Route: 048
     Dates: start: 20091006
  10. CELLCEPT [Concomitant]
     Dosage: 1000 MG, UNK
     Route: 048
     Dates: end: 20091030
  11. SOLU-MEDROL [Concomitant]
     Indication: RENAL TRANSPLANT
     Dosage: 625 MG, UNK
     Route: 042
     Dates: start: 20091013
  12. SOLU-MEDROL [Concomitant]
     Dosage: 250 MG, UNK
     Route: 042
  13. SOLU-MEDROL [Concomitant]
     Dosage: 125 MG, UNK
     Route: 042
  14. SOLU-MEDROL [Concomitant]
     Dosage: 250 MG, UNK
     Route: 042
  15. SOLU-MEDROL [Concomitant]
     Dosage: 1000 MG, UNK
     Route: 042
     Dates: end: 20091103
  16. PENTCILLIN [Concomitant]
     Indication: INFECTION PROPHYLAXIS
     Dosage: 2 G, UNK
     Route: 042
     Dates: start: 20091013
  17. PENTCILLIN [Concomitant]
     Dosage: 1 G, UNK
     Route: 042
     Dates: end: 20091103
  18. BAKTAR [Concomitant]
     Indication: PROPHYLAXIS
     Dosage: 1 DF, UNK
     Route: 048
     Dates: start: 20091014, end: 20091022
  19. MEROPEN [Concomitant]
     Indication: SEPSIS
     Dosage: 2 G, UNK
     Route: 042
     Dates: start: 20091102, end: 20091104
  20. AMBISOME [Concomitant]
     Indication: SEPSIS
     Dosage: 300 MG, UNK
     Route: 042
     Dates: start: 20091103, end: 20091103
  21. ZANTAC [Concomitant]
     Indication: PROPHYLAXIS
     Dosage: 100 MG, UNK
     Route: 042
     Dates: start: 20091013
  22. ZANTAC [Concomitant]
     Dosage: 100 MG, UNK
     Route: 042
     Dates: end: 20091103
  23. ZANTAC [Concomitant]
     Dosage: 300 MG, UNK
     Route: 048
     Dates: start: 20091016, end: 20091022
  24. OMEPRAL [Concomitant]
     Indication: PROPHYLAXIS
     Dosage: 40 MG, UNK
     Route: 042
     Dates: start: 20091023, end: 20091031
  25. NOVORAPID [Concomitant]
     Indication: DIABETES MELLITUS
     Dosage: 12 DF, UNK
     Route: 058
     Dates: start: 20091013, end: 20091021
  26. NOVOLIN N [Concomitant]
     Indication: DIABETES MELLITUS
     Dosage: 12 DF, UNK
     Route: 058
     Dates: start: 20091015, end: 20091104
  27. ARTIST [Concomitant]
     Indication: HYPERTENSION
     Dosage: 10 MG, UNK
     Route: 048
     Dates: start: 20091013, end: 20091019
  28. CONIEL [Concomitant]
     Indication: HYPERTENSION
     Dosage: 12 DF, UNK
     Route: 048
     Dates: start: 20091013, end: 20091019
  29. MIGLITOL [Concomitant]
     Indication: HYPERTENSION
     Dosage: 150 MG, UNK
     Route: 048
     Dates: start: 20091013, end: 20091019

REACTIONS (9)
  - CARDIO-RESPIRATORY ARREST [None]
  - CIRCULATORY COLLAPSE [None]
  - HAEMOSTASIS [None]
  - KIDNEY TRANSPLANT REJECTION [None]
  - RENAL GRAFT LOSS [None]
  - RENAL HAEMORRHAGE [None]
  - RESPIRATORY DISTRESS [None]
  - SEPSIS [None]
  - URINE OUTPUT DECREASED [None]
